FAERS Safety Report 20179541 (Version 2)
Quarter: 2022Q1

REPORT INFORMATION
  Report Type: Spontaneous
  Country: US (occurrence: US)
  Receive Date: 20211214
  Receipt Date: 20220105
  Transmission Date: 20220424
  Serious: No
  Sender: FDA-Public Use
  Company Number: US-ORGANON-O2112USA000161

PATIENT
  Age: 20 Year
  Sex: Female
  Weight: 86.077 kg

DRUGS (1)
  1. NEXPLANON [Suspect]
     Active Substance: ETONOGESTREL
     Indication: Contraception
     Dosage: 1 IMPLANT FOR LEFT UPPER ARM
     Route: 059
     Dates: start: 20191113, end: 20211129

REACTIONS (3)
  - Sexually transmitted disease [Unknown]
  - Device breakage [Recovered/Resolved]
  - Abdominal pain lower [Unknown]

NARRATIVE: CASE EVENT DATE: 20211129
